FAERS Safety Report 5692871-6 (Version None)
Quarter: 2008Q2

REPORT INFORMATION
  Report Type: 
  Country: None (occurrence: None)
  Receive Date: 20080401
  Receipt Date: 20080319
  Transmission Date: 20081010
  Serious: Yes (Other)
  Sender: FDA-Public Use
  Company Number: DSA_31642_2008

PATIENT

DRUGS (1)
  1. LORAZEPAM [Suspect]
     Dosage: 16.5 MG 1X NOT THE PRESCRIBED AMOUNT. ORAL
     Route: 048
     Dates: start: 20080313, end: 20080313

REACTIONS (3)
  - INTENTIONAL OVERDOSE [None]
  - ORGASM ABNORMAL [None]
  - SUICIDE ATTEMPT [None]
